FAERS Safety Report 9782436 (Version 1)
Quarter: 2013Q4

REPORT INFORMATION
  Report Type: Spontaneous
  Country: CH (occurrence: CH)
  Receive Date: 20131226
  Receipt Date: 20131226
  Transmission Date: 20140711
  Serious: Yes (Other)
  Sender: FDA-Public Use
  Company Number: CH-JNJFOC-20131214144

PATIENT
  Sex: Female

DRUGS (5)
  1. TOPAMAX [Suspect]
     Indication: BIPOLAR DISORDER
     Route: 048
     Dates: end: 201305
  2. XANAX [Suspect]
     Indication: PRODUCT USED FOR UNKNOWN INDICATION
     Route: 065
     Dates: start: 2012
  3. METHADONE [Suspect]
     Indication: PRODUCT USED FOR UNKNOWN INDICATION
     Route: 065
  4. METHADONE [Suspect]
     Indication: PRODUCT USED FOR UNKNOWN INDICATION
     Route: 065
  5. SEROQUEL [Suspect]
     Indication: BIPOLAR DISORDER
     Route: 065
     Dates: start: 2013, end: 201307

REACTIONS (2)
  - Exposure during pregnancy [Recovered/Resolved]
  - Off label use [Unknown]
